FAERS Safety Report 4890214-9 (Version None)
Quarter: 2006Q1

REPORT INFORMATION
  Report Type: 
  Country: None (occurrence: None)
  Receive Date: 20060124
  Receipt Date: 20051017
  Transmission Date: 20060701
  Serious: Yes (Hospitalization, Other)
  Sender: FDA-Public Use
  Company Number: US-MERCK-0510USA07781

PATIENT
  Age: 67 Year
  Sex: Female
  Weight: 97 kg

DRUGS (8)
  1. VIOXX [Suspect]
     Indication: RHEUMATOID ARTHRITIS
     Route: 048
     Dates: start: 20020228, end: 20031016
  2. METHOTREXATE [Concomitant]
     Route: 065
  3. ATACAND [Concomitant]
     Route: 065
  4. FOLIC ACID [Concomitant]
     Route: 065
  5. ISORDIL [Concomitant]
     Route: 065
  6. PREDNISONE [Concomitant]
     Route: 065
  7. ZYRTEC [Concomitant]
     Route: 048
  8. ALBUTEROL [Concomitant]
     Route: 055

REACTIONS (6)
  - CEREBROVASCULAR ACCIDENT [None]
  - CORONARY ARTERY DISEASE [None]
  - DIABETES MELLITUS [None]
  - HYPERTENSION [None]
  - MYOCARDIAL INFARCTION [None]
  - PALPITATIONS [None]
